FAERS Safety Report 19391997 (Version 2)
Quarter: 2021Q3

REPORT INFORMATION
  Report Type: Spontaneous
  Country: US (occurrence: US)
  Receive Date: 20210609
  Receipt Date: 20210713
  Transmission Date: 20211014
  Serious: Yes (Other)
  Sender: FDA-Public Use
  Company Number: US-ROCHE-2844370

PATIENT
  Age: 31 Year
  Sex: Female

DRUGS (1)
  1. ROZLYTREK [Suspect]
     Active Substance: ENTRECTINIB
     Indication: LUNG NEOPLASM MALIGNANT
     Route: 048
     Dates: start: 20201224

REACTIONS (6)
  - Ankle fracture [Unknown]
  - Hypertension [Unknown]
  - Loss of consciousness [Unknown]
  - Anaemia [Unknown]
  - Fall [Unknown]
  - Bone disorder [Unknown]

NARRATIVE: CASE EVENT DATE: 20210504
